FAERS Safety Report 4805260-0 (Version None)
Quarter: 2005Q4

REPORT INFORMATION
  Report Type: 
  Country: None (occurrence: None)
  Receive Date: 20051020
  Receipt Date: 20050907
  Transmission Date: 20060501
  Serious: Yes (Disabling)
  Sender: FDA-Public Use
  Company Number: AU-MERCK-0509AUS00092

PATIENT
  Age: 21 Year
  Sex: Male
  Weight: 80 kg

DRUGS (1)
  1. PROSCAR [Suspect]
     Indication: ALOPECIA
     Route: 048
     Dates: end: 20050101

REACTIONS (4)
  - MICTURITION URGENCY [None]
  - NOCTURIA [None]
  - POLLAKIURIA [None]
  - WRONG TECHNIQUE IN DRUG USAGE PROCESS [None]
